FAERS Safety Report 9098229 (Version 1)
Quarter: 2013Q1

REPORT INFORMATION
  Report Type: Spontaneous
  Country: FR (occurrence: FR)
  Receive Date: 20130213
  Receipt Date: 20130213
  Transmission Date: 20140127
  Serious: Yes (Death)
  Sender: FDA-Public Use
  Company Number: PHHY2013FR013466

PATIENT
  Age: 90 Year
  Sex: Female

DRUGS (6)
  1. AMOXICILLIN+CLAVULANATE [Suspect]
     Dosage: 3 G, QD
     Route: 048
     Dates: start: 20111205, end: 20111210
  2. ARIXTRA [Suspect]
     Dosage: 1 DF, QD
     Route: 058
     Dates: start: 20111202, end: 20111210
  3. BUDESONIDE [Suspect]
     Dosage: 1 MG, TID
     Dates: start: 20111203, end: 20111210
  4. PARACETAMOL [Suspect]
     Dosage: 3 G, QD
     Route: 048
     Dates: start: 20111209, end: 20111210
  5. ROVAMYCINE [Suspect]
     Dosage: 3 DF, QD
     Route: 048
     Dates: start: 20111206, end: 20111210
  6. METHYLPREDNISOLONE [Suspect]
     Dosage: 40 MG IN ONE DAY
     Route: 042
     Dates: start: 20111206, end: 20111210

REACTIONS (2)
  - Haematoma [Fatal]
  - Hypovolaemic shock [Fatal]
